FAERS Safety Report 9582681 (Version 1)
Quarter: 2013Q4

REPORT INFORMATION
  Report Type: Spontaneous
  Country: US (occurrence: US)
  Receive Date: 20131002
  Receipt Date: 20131002
  Transmission Date: 20140711
  Serious: No
  Sender: FDA-Public Use
  Company Number: US-AMGEN-USASP2013042128

PATIENT
  Age: 49 Year
  Sex: Female

DRUGS (7)
  1. ENBREL [Suspect]
     Indication: PRODUCT USED FOR UNKNOWN INDICATION
     Dosage: 50 MG, QWK
     Route: 058
  2. CELEBREX [Concomitant]
     Dosage: 100 MG, UNK
  3. SERTRALINE [Concomitant]
     Dosage: 25 MG, UNK
  4. CLONAZEPAM [Concomitant]
     Dosage: 1 MG, UNK
  5. GABAPENTIN [Concomitant]
     Dosage: 800 MG, UNK
  6. FEXOFENADINE [Concomitant]
     Dosage: 180 MG, UNK
  7. FLOVENT [Concomitant]
     Dosage: 110 MUG, UNK

REACTIONS (1)
  - Contusion [Unknown]
